FAERS Safety Report 7124162-0 (Version None)
Quarter: 2010Q4

REPORT INFORMATION
  Report Type: 
  Country: None (occurrence: None)
  Receive Date: 20101126
  Receipt Date: 20101115
  Transmission Date: 20110411
  Serious: Yes (Disabling, Other)
  Sender: FDA-Public Use
  Company Number: PHHY2010JP37702

PATIENT
  Sex: Male
  Weight: 58 kg

DRUGS (5)
  1. DIOVAN HCT [Suspect]
     Indication: HYPERTENSION
     Dosage: 1 DF, DAILY
     Route: 048
     Dates: start: 20100126, end: 20100529
  2. ADALAT CC [Concomitant]
     Indication: HYPERTENSION
     Dosage: 20 MG
     Route: 048
     Dates: start: 20000323
  3. LIPITOR [Concomitant]
     Indication: HYPERLIPIDAEMIA
     Dosage: 5 MG
     Route: 048
     Dates: start: 20021209
  4. ASPIRIN [Concomitant]
     Indication: CEREBRAL INFARCTION
     Dosage: 100 MG
     Route: 048
     Dates: start: 20010310
  5. ROCORNAL [Concomitant]
     Indication: CARDIOMYOPATHY
     Dosage: 200 MG
     Route: 048
     Dates: start: 20050210

REACTIONS (5)
  - BLOOD PRESSURE ABNORMAL [None]
  - CEREBRAL INFARCTION [None]
  - GAIT DISTURBANCE [None]
  - MONOPLEGIA [None]
  - MUSCLE SPASMS [None]
